FAERS Safety Report 6054449-4 (Version None)
Quarter: 2009Q1

REPORT INFORMATION
  Report Type: 
  Country: None (occurrence: None)
  Receive Date: 20090127
  Receipt Date: 20090119
  Transmission Date: 20090719
  Serious: Yes (Hospitalization)
  Sender: FDA-Public Use
  Company Number: FR-B.I. PHARMACEUTICALS,INC./RIDGEFIELD-2009-FF-00032FF

PATIENT
  Sex: Female

DRUGS (3)
  1. SPIRIVA [Suspect]
     Dosage: 18MCG
     Route: 055
     Dates: start: 20071101, end: 20080208
  2. SOLACY [Concomitant]
     Route: 048
     Dates: start: 20080125, end: 20080208
  3. SERETIDE DISKUS [Concomitant]
     Dosage: 500/50MCG TWO DOSES TWICE DAILY
     Route: 055
     Dates: start: 20080125, end: 20080208

REACTIONS (4)
  - ARTHRALGIA [None]
  - OEDEMA [None]
  - PRURITUS [None]
  - PURPURA [None]
